FAERS Safety Report 9826079 (Version 2)
Quarter: 2014Q1

REPORT INFORMATION
  Report Type: Spontaneous
  Country: US (occurrence: US)
  Receive Date: 20140117
  Receipt Date: 20140117
  Transmission Date: 20141002
  Serious: Yes (Hospitalization, Other)
  Sender: FDA-Public Use
  Company Number: US-UCBSA-092883

PATIENT
  Age: 74 Year
  Sex: Female

DRUGS (2)
  1. CIMZIA [Suspect]
     Indication: RHEUMATOID ARTHRITIS
     Dates: start: 20110418
  2. CIMZIA [Suspect]
     Indication: RHEUMATOID ARTHRITIS

REACTIONS (5)
  - Cerebrovascular accident [Not Recovered/Not Resolved]
  - Atrioventricular block [Recovered/Resolved]
  - Urinary tract infection [Unknown]
  - Fall [Not Recovered/Not Resolved]
  - Dizziness [Unknown]
